FAERS Safety Report 16780443 (Version 1)
Quarter: 2019Q3

REPORT INFORMATION
  Report Type: Spontaneous
  Country: US (occurrence: US)
  Receive Date: 20190906
  Receipt Date: 20190906
  Transmission Date: 20191005
  Serious: Yes (Death, Hospitalization)
  Sender: FDA-Public Use
  Company Number: US-MYLANLABS-2019M1082852

PATIENT
  Age: 4 Year
  Sex: Male
  Weight: 15.3 kg

DRUGS (10)
  1. AMIODARONE [Suspect]
     Active Substance: AMIODARONE
     Indication: ARRHYTHMIA
     Route: 065
  2. PROPOFOL. [Interacting]
     Active Substance: PROPOFOL
     Indication: LOCAL ANAESTHESIA
     Route: 065
  3. BICARBONATE [Suspect]
     Active Substance: SODIUM BICARBONATE
     Indication: ARRHYTHMIA
     Route: 065
  4. INSULIN [Suspect]
     Active Substance: INSULIN NOS
     Indication: HYPERKALAEMIA
     Route: 065
  5. ROPIVACAINE. [Suspect]
     Active Substance: ROPIVACAINE HYDROCHLORIDE
     Indication: LOCAL ANAESTHESIA
     Dosage: 6.5 MCG/KG/MIN VIA AN ON-Q PUMP
     Route: 058
  6. DEXTROSE. [Suspect]
     Active Substance: DEXTROSE
     Indication: ARRHYTHMIA
     Route: 065
  7. FAT EMULSION NOS [Suspect]
     Active Substance: EGG PHOSPHOLIPIDS\SAFFLOWER OIL\SOYBEAN OIL
     Indication: ARRHYTHMIA
     Dosage: 1.5 ML/KG
     Route: 040
  8. CEFTRIAXONE. [Concomitant]
     Active Substance: CEFTRIAXONE
     Indication: PRODUCT USED FOR UNKNOWN INDICATION
     Route: 065
  9. FENTANYL. [Concomitant]
     Active Substance: FENTANYL
     Indication: PRODUCT USED FOR UNKNOWN INDICATION
     Route: 065
  10. PANTOPRAZOLE [Concomitant]
     Active Substance: PANTOPRAZOLE
     Indication: PRODUCT USED FOR UNKNOWN INDICATION
     Route: 042

REACTIONS (6)
  - Arrhythmia [Fatal]
  - Cardiac arrest [Fatal]
  - Drug interaction [Fatal]
  - Local anaesthetic systemic toxicity [Fatal]
  - Ventricular fibrillation [Fatal]
  - Drug ineffective [Unknown]
